FAERS Safety Report 6682517-2 (Version None)
Quarter: 2010Q2

REPORT INFORMATION
  Report Type: 
  Country: None (occurrence: None)
  Receive Date: 20100414
  Receipt Date: 20100414
  Transmission Date: 20101027
  Serious: No
  Sender: FDA-Public Use
  Company Number: None

PATIENT
  Age: 61 Year
  Sex: Female
  Weight: 46.27 kg

DRUGS (2)
  1. DIAZEPAM [Suspect]
     Indication: VASCULAR OPERATION
     Dosage: 5 MG PRN PO
     Route: 048
     Dates: start: 20100204, end: 20100206
  2. LORAZEPAM [Suspect]
     Indication: VASCULAR OPERATION
     Dosage: 20.5 MG PRN IV
     Route: 042
     Dates: start: 20100203, end: 20100206

REACTIONS (3)
  - AGITATION [None]
  - CONVERSION DISORDER [None]
  - NO THERAPEUTIC RESPONSE [None]
